FAERS Safety Report 4940504-6 (Version None)
Quarter: 2006Q1

REPORT INFORMATION
  Report Type: 
  Country: None (occurrence: None)
  Receive Date: 20060131
  Receipt Date: 20051019
  Transmission Date: 20060701
  Serious: No
  Sender: FDA-Public Use
  Company Number: 200518317US

PATIENT
  Age: 21 Year
  Sex: Female

DRUGS (2)
  1. KETEK [Suspect]
     Indication: ACUTE SINUSITIS
     Dosage: 400 MG PO
     Route: 048
     Dates: start: 20051014, end: 20051014
  2. ORAL CONTRACEPTIVE NOS [Concomitant]

REACTIONS (2)
  - ASTHENIA [None]
  - TREMOR [None]
